FAERS Safety Report 17813434 (Version 2)
Quarter: 2020Q2

REPORT INFORMATION
  Report Type: Spontaneous
  Country: TR (occurrence: TR)
  Receive Date: 20200521
  Receipt Date: 20200525
  Transmission Date: 20200714
  Serious: Yes (Disabling)
  Sender: FDA-Public Use
  Company Number: TR-ROCHE-2604896

PATIENT
  Age: 79 Year
  Sex: Male

DRUGS (1)
  1. ACTILYSE [Suspect]
     Active Substance: ALTEPLASE
     Indication: ISCHAEMIC CEREBRAL INFARCTION
     Route: 042

REACTIONS (1)
  - Nervous system disorder [Not Recovered/Not Resolved]
